FAERS Safety Report 16982432 (Version 4)
Quarter: 2020Q4

REPORT INFORMATION
  Report Type: Spontaneous
  Country: AR (occurrence: AR)
  Receive Date: 20191101
  Receipt Date: 20201021
  Transmission Date: 20210113
  Serious: Yes (Other)
  Sender: FDA-Public Use
  Company Number: NVSC2019AR020433

PATIENT
  Age: 66 Year
  Sex: Female

DRUGS (3)
  1. LEVOTHYROXINE. [Concomitant]
     Active Substance: LEVOTHYROXINE
     Indication: HYPOTHYROIDISM
     Dosage: UNK, QD
     Route: 065
  2. PREGABALIN. [Concomitant]
     Active Substance: PREGABALIN
     Indication: NEUROPATHY PERIPHERAL
     Route: 065
  3. GILENYA [Suspect]
     Active Substance: FINGOLIMOD HYDROCHLORIDE
     Indication: MULTIPLE SCLEROSIS
     Dosage: UNK (APPROXIMATELY 10 YEARS AGO)
     Route: 065
     Dates: start: 2012

REACTIONS (8)
  - Ductal adenocarcinoma of pancreas [Unknown]
  - Neoplasm [Unknown]
  - Pancreatic disorder [Unknown]
  - Dysuria [Unknown]
  - Blood glucose abnormal [Unknown]
  - Pancreatic carcinoma [Unknown]
  - Hepatobiliary disease [Unknown]
  - Blood cholesterol abnormal [Unknown]

NARRATIVE: CASE EVENT DATE: 201909
